FAERS Safety Report 9558360 (Version 1)
Quarter: 2013Q3

REPORT INFORMATION
  Report Type: Spontaneous
  Country: US (occurrence: US)
  Receive Date: 20130926
  Receipt Date: 20130926
  Transmission Date: 20140515
  Serious: Yes (Other)
  Sender: FDA-Public Use
  Company Number: US-TEVA-434422USA

PATIENT
  Age: 82 Year
  Sex: Female
  Weight: 83.99 kg

DRUGS (9)
  1. PROAIR HFA [Suspect]
     Indication: CHRONIC OBSTRUCTIVE PULMONARY DISEASE
  2. SPIRIVA [Concomitant]
     Indication: CHRONIC OBSTRUCTIVE PULMONARY DISEASE
  3. LOSARTAN POTASSIUM W/HYDROCHLOROTHIAZIDE [Concomitant]
     Indication: HYPERTENSION
  4. SIMVASTATIN [Concomitant]
     Indication: HYPERCHOLESTEROLAEMIA
  5. LUMIGAN [Concomitant]
     Indication: GLAUCOMA
  6. SIMBRINZA [Concomitant]
     Indication: GLAUCOMA
  7. BABY ASPIRIN [Concomitant]
     Indication: PROPHYLAXIS
  8. OMEPRAZOLE [Concomitant]
     Indication: DYSPEPSIA
  9. PRESERVISION [Concomitant]
     Indication: VITAMIN SUPPLEMENTATION

REACTIONS (1)
  - Glaucoma [Not Recovered/Not Resolved]
